FAERS Safety Report 9372301 (Version 1)
Quarter: 2013Q2

REPORT INFORMATION
  Report Type: Spontaneous
  Country: FR (occurrence: FR)
  Receive Date: 20130627
  Receipt Date: 20130627
  Transmission Date: 20140414
  Serious: Yes (Hospitalization)
  Sender: FDA-Public Use
  Company Number: PHHY2013FR065987

PATIENT
  Age: 85 Year
  Sex: Male

DRUGS (3)
  1. EXFORGE [Suspect]
     Dosage: 1 DF (160 MG VALS AND 10 MG AMLO), QD
     Route: 048
     Dates: end: 20111125
  2. EQUANIL [Suspect]
     Dosage: 400 MG, BID
     Route: 048
  3. EBIXA [Concomitant]
     Dosage: UNK UKN, UNK
     Route: 048

REACTIONS (3)
  - Parkinsonism [Recovered/Resolved]
  - Fall [Recovered/Resolved]
  - Orthostatic hypotension [Recovered/Resolved]
